FAERS Safety Report 8979977 (Version 1)
Quarter: 2012Q4

REPORT INFORMATION
  Report Type: Report from Study
  Country: GB (occurrence: GB)
  Receive Date: 20121221
  Receipt Date: 20121221
  Transmission Date: 20130627
  Serious: Yes (Hospitalization, Other)
  Sender: FDA-Public Use
  Company Number: GB-ROCHE-1173008

PATIENT
  Age: 87 Year
  Sex: Male

DRUGS (2)
  1. RANIBIZUMAB [Suspect]
     Indication: AGE-RELATED MACULAR DEGENERATION
     Route: 050
     Dates: start: 20090425
  2. RANIBIZUMAB [Suspect]
     Route: 050
     Dates: start: 20121108

REACTIONS (4)
  - Brain contusion [Recovered/Resolved]
  - Transient ischaemic attack [Recovered/Resolved]
  - Transient global amnesia [Recovered/Resolved]
  - Headache [Recovered/Resolved]
